FAERS Safety Report 7838269-3 (Version None)
Quarter: 2011Q4

REPORT INFORMATION
  Report Type: 
  Country: None (occurrence: None)
  Receive Date: 20111024
  Receipt Date: 20111011
  Transmission Date: 20120403
  Serious: Yes (Hospitalization)
  Sender: FDA-Public Use
  Company Number: US-GILEAD-2011-0036552

PATIENT

DRUGS (4)
  1. FOLIC ACID/FERROUS FUMARATE [Concomitant]
  2. ACETAMINOPHEN [Concomitant]
     Dates: start: 20101208
  3. TENOFOVIR DISOPROXIL FUMARATE [Suspect]
     Dates: start: 20100624, end: 20101014
  4. CEPHALEXIN [Concomitant]
     Dates: start: 20101014, end: 20101018

REACTIONS (2)
  - PREGNANCY [None]
  - URINARY TRACT INFECTION [None]
